FAERS Safety Report 8618337 (Version 19)
Quarter: 2015Q3

REPORT INFORMATION
  Report Type: Spontaneous
  Country: US (occurrence: US)
  Receive Date: 20120615
  Receipt Date: 20150812
  Transmission Date: 20151125
  Serious: Yes (Hospitalization, Other)
  Sender: FDA-Public Use
  Company Number: US-ALLERGAN-1202453US

PATIENT
  Age: 32 Year
  Sex: Female
  Weight: 54.42 kg

DRUGS (7)
  1. JUVEDERM [Concomitant]
     Active Substance: HYALURONIC ACID
     Indication: SCAR
     Dosage: UNK
     Dates: start: 20091106, end: 20091106
  2. VITAMIN B COMPLEX [Concomitant]
     Active Substance: CYANOCOBALAMIN\DEXPANTHENOL\NIACINAMIDE\PYRIDOXINE HYDROCHLORIDE\RIBOFLAVIN 5^-PHOSPHATE SODIUM\THIAMINE HYDROCHLORIDE\VITAMIN B COMPLEX
  3. OMEGA 3 [Concomitant]
     Active Substance: OMEGA-3 FATTY ACIDS
  4. BABY ASPIRIN [Concomitant]
     Active Substance: ASPIRIN
  5. CENTRUM [Concomitant]
     Active Substance: VITAMINS
  6. BOTOX COSMETIC [Suspect]
     Active Substance: ONABOTULINUMTOXINA
     Indication: SKIN WRINKLING
     Dosage: 28 UNITS, SINGLE
     Route: 030
     Dates: start: 20120215, end: 20120215
  7. FILLER UNSPECIFIED [Concomitant]
     Indication: SCAR
     Dosage: UNK
     Dates: start: 20100510, end: 20100510

REACTIONS (82)
  - Pregnancy [Unknown]
  - Blood alkaline phosphatase decreased [Unknown]
  - Carbon dioxide decreased [Unknown]
  - Melanocytic naevus [Unknown]
  - Hypertension [Recovered/Resolved]
  - Bradyphrenia [Recovering/Resolving]
  - Mental status changes [Unknown]
  - Depression [Unknown]
  - Nausea [Unknown]
  - Botulism [Unknown]
  - Hypersensitivity [Recovered/Resolved]
  - Acute sinusitis [Recovered/Resolved]
  - Anxiety [Recovered/Resolved]
  - Pharyngitis [Recovered/Resolved]
  - Coeliac artery stenosis [Unknown]
  - Electrocardiogram abnormal [Unknown]
  - Stress [Recovering/Resolving]
  - Sinus tachycardia [Recovered/Resolved]
  - Arterial disorder [Unknown]
  - Dyspepsia [Not Recovered/Not Resolved]
  - Nerve injury [Unknown]
  - Photophobia [Not Recovered/Not Resolved]
  - Dry eye [Not Recovered/Not Resolved]
  - Memory impairment [Recovering/Resolving]
  - Blood calcium decreased [Unknown]
  - Muscle tightness [Unknown]
  - Inflammation [Unknown]
  - Dyspnoea [Recovered/Resolved]
  - Dysphagia [Unknown]
  - Monocyte count increased [Unknown]
  - Vasculitis [Unknown]
  - Endocrine disorder [Unknown]
  - Impaired gastric emptying [Unknown]
  - Diaphragmatic spasm [Unknown]
  - Migraine [Recovering/Resolving]
  - Swelling [Unknown]
  - Headache [Recovered/Resolved]
  - Hypothyroidism [Unknown]
  - Palpitations [Recovering/Resolving]
  - Upper respiratory tract infection [Recovered/Resolved]
  - Feeling abnormal [Unknown]
  - Palpitations [Unknown]
  - Head discomfort [Unknown]
  - Pneumonia [Unknown]
  - Gastrointestinal disorder [Recovering/Resolving]
  - Musculoskeletal discomfort [Recovering/Resolving]
  - Dyspnoea [Recovered/Resolved]
  - Pruritus [Unknown]
  - Vision blurred [Unknown]
  - Pharyngeal oedema [Recovered/Resolved]
  - Fear of death [Unknown]
  - Seborrhoeic dermatitis [Unknown]
  - Thyroid disorder [Unknown]
  - Infection [Unknown]
  - Food intolerance [Unknown]
  - Saliva altered [Not Recovered/Not Resolved]
  - Blood magnesium decreased [Unknown]
  - Musculoskeletal stiffness [Recovered/Resolved]
  - Back pain [Recovering/Resolving]
  - Dizziness [Unknown]
  - Paraesthesia [Unknown]
  - Dyspnoea [Unknown]
  - Oropharyngeal pain [Recovered/Resolved]
  - Blood creatinine increased [Unknown]
  - Blood potassium decreased [Unknown]
  - Ligament disorder [Unknown]
  - Soft tissue disorder [Unknown]
  - Autoimmune disorder [Unknown]
  - Musculoskeletal pain [Recovering/Resolving]
  - Tension [Recovering/Resolving]
  - Fatigue [Unknown]
  - Abdominal pain [Not Recovered/Not Resolved]
  - Alopecia [Unknown]
  - Dry mouth [Not Recovered/Not Resolved]
  - Drug hypersensitivity [Recovering/Resolving]
  - Chest discomfort [Recovered/Resolved]
  - Throat tightness [Recovered/Resolved]
  - Gastrooesophageal reflux disease [Not Recovered/Not Resolved]
  - Nasal congestion [Unknown]
  - Dysphagia [Recovered/Resolved]
  - Dyspnoea [Recovered/Resolved]
  - Abdominal pain [Unknown]

NARRATIVE: CASE EVENT DATE: 20120216
